FAERS Safety Report 4641022-5 (Version None)
Quarter: 2005Q2

REPORT INFORMATION
  Report Type: 
  Country: None (occurrence: None)
  Receive Date: 20050419
  Receipt Date: 20050419
  Transmission Date: 20051028
  Serious: Yes (Death)
  Sender: FDA-Public Use
  Company Number: None

PATIENT
  Age: 48 Year
  Sex: Male
  Weight: 114 kg

DRUGS (12)
  1. LITHIUM CARBONATE [Suspect]
     Indication: SCHIZOAFFECTIVE DISORDER
     Dosage: 450 MG BY MOUTH TWICE DAILY
  2. FUROSEMIDE [Concomitant]
  3. ASPIRIN [Concomitant]
  4. LEVOTHYROXINE SODIUM [Concomitant]
  5. OMEPRAZOLE [Concomitant]
  6. METOCARBAMOL [Concomitant]
  7. FIORICET [Concomitant]
  8. ORLISTAT [Concomitant]
  9. CITALOPRAM HYDROBROMIDE [Concomitant]
  10. CLONAZEPAM [Concomitant]
  11. TRAMADOL HCL [Concomitant]
  12. ZIPRASIDONE [Concomitant]

REACTIONS (10)
  - ABASIA [None]
  - ARRHYTHMIA [None]
  - ASTHENIA [None]
  - CARDIO-RESPIRATORY ARREST [None]
  - CONFUSIONAL STATE [None]
  - FLUID INTAKE REDUCED [None]
  - LETHARGY [None]
  - MORBID THOUGHTS [None]
  - ORAL INTAKE REDUCED [None]
  - TREMOR [None]
